FAERS Safety Report 10979545 (Version 5)
Quarter: 2016Q1

REPORT INFORMATION
  Report Type: Report from Study
  Country: US (occurrence: US)
  Receive Date: 20150402
  Receipt Date: 20160125
  Transmission Date: 20160525
  Serious: Yes (Other)
  Sender: FDA-Public Use
  Company Number: US-ASTELLAS-2015US009757

PATIENT
  Age: 83 Year
  Sex: Male

DRUGS (17)
  1. FERROUS SULFATE [Concomitant]
     Active Substance: FERROUS SULFATE\FERROUS SULFATE, DRIED
     Indication: SUPPLEMENTATION THERAPY
     Route: 048
     Dates: start: 20141110
  2. PROTONIX [Concomitant]
     Active Substance: PANTOPRAZOLE SODIUM
     Indication: GASTROOESOPHAGEAL REFLUX DISEASE
     Route: 048
     Dates: start: 20120525
  3. VOLTAREN [Concomitant]
     Active Substance: DICLOFENAC SODIUM
     Indication: PAIN IN EXTREMITY
     Dosage: 1 %, 3-4 TIMES DAILY
     Route: 061
  4. SENOKOT-S [Concomitant]
     Active Substance: DOCUSATE SODIUM\SENNOSIDES
     Indication: CONSTIPATION
     Dosage: 1 DF, PRN
     Route: 048
  5. XGEVA [Concomitant]
     Active Substance: DENOSUMAB
     Indication: OSTEOPENIA
     Route: 058
     Dates: start: 20140117
  6. AVAPRO [Concomitant]
     Active Substance: IRBESARTAN
     Indication: HYPERTENSION
     Route: 048
     Dates: start: 20130218
  7. ENZALUTAMIDE [Suspect]
     Active Substance: ENZALUTAMIDE
     Indication: PROSTATE CANCER
     Route: 048
     Dates: start: 20141120, end: 20150309
  8. METOPROLOL TARTRATE. [Concomitant]
     Active Substance: METOPROLOL TARTRATE
     Indication: HYPERTENSION
     Route: 048
     Dates: start: 20131218
  9. SYMBICORT [Concomitant]
     Active Substance: BUDESONIDE\FORMOTEROL FUMARATE DIHYDRATE
     Indication: LUNG NEOPLASM MALIGNANT
     Dosage: 2 PUFFS (160 ?G), TWICE DAILY
     Route: 055
     Dates: start: 201310
  10. CALCARB WITH VITAMIN D [Concomitant]
     Indication: SUPPLEMENTATION THERAPY
     Dosage: 600/400 UNITS, TWICE DAILY
     Route: 048
     Dates: start: 20140421
  11. XGEVA [Concomitant]
     Active Substance: DENOSUMAB
     Indication: OSTEOPOROSIS
  12. VITAMIN D3 [Concomitant]
     Active Substance: CHOLECALCIFEROL
     Indication: SUPPLEMENTATION THERAPY
     Dosage: 2000 UNITS, TWICE DAILY
     Route: 048
     Dates: start: 20140218
  13. FISH OIL [Concomitant]
     Active Substance: FISH OIL
     Indication: SUPPLEMENTATION THERAPY
     Route: 048
     Dates: start: 20140218
  14. ASPIRIN. [Concomitant]
     Active Substance: ASPIRIN
     Indication: CARDIOVASCULAR EVENT PROPHYLAXIS
     Route: 048
     Dates: start: 20130304
  15. CALCITROL                          /00508501/ [Concomitant]
     Active Substance: CALCIUM CARBONATE\ERGOCALCIFEROL\RETINOL
     Indication: SUPPLEMENTATION THERAPY
     Dosage: 0.25 ?G, THRICE DAILY
     Route: 048
     Dates: start: 20130605
  16. LYRICA [Concomitant]
     Active Substance: PREGABALIN
     Indication: PAIN IN EXTREMITY
     Route: 048
     Dates: start: 20141119, end: 20141205
  17. ATORVASTATIN [Concomitant]
     Active Substance: ATORVASTATIN
     Indication: CORONARY ARTERY DISEASE
     Route: 048
     Dates: start: 2011

REACTIONS (4)
  - Glassy eyes [Recovered/Resolved]
  - Altered state of consciousness [Recovered/Resolved]
  - Confusional state [Recovered/Resolved]
  - Dysgeusia [Recovering/Resolving]

NARRATIVE: CASE EVENT DATE: 201411
